FAERS Safety Report 9328029 (Version 1)
Quarter: 2013Q2

REPORT INFORMATION
  Report Type: Report from Study
  Country: US (occurrence: US)
  Receive Date: 20130604
  Receipt Date: 20130604
  Transmission Date: 20140414
  Serious: Yes (Hospitalization, Other)
  Sender: FDA-Public Use
  Company Number: US-TEVA-403448USA

PATIENT
  Age: 25 Year
  Sex: Female

DRUGS (2)
  1. CLARAVIS [Suspect]
  2. CONTRACEPTIVES NOS [Concomitant]
     Route: 065

REACTIONS (1)
  - Pulmonary embolism [Recovering/Resolving]
